FAERS Safety Report 7016010-4 (Version None)
Quarter: 2010Q3

REPORT INFORMATION
  Report Type: 
  Country: None (occurrence: None)
  Receive Date: 20100923
  Receipt Date: 20100914
  Transmission Date: 20110219
  Serious: Yes (Hospitalization)
  Sender: FDA-Public Use
  Company Number: 018209

PATIENT
  Sex: Female
  Weight: 50 kg

DRUGS (7)
  1. VIMPAT [Suspect]
     Indication: EPILEPSY
     Dosage: (100 MG BID ORAL), (150 MG, 50+100 MG/DAY ORAL), (DOSE REDUCED ORAL)
     Route: 048
     Dates: end: 20100210
  2. VIMPAT [Suspect]
     Indication: EPILEPSY
     Dosage: (100 MG BID ORAL), (150 MG, 50+100 MG/DAY ORAL), (DOSE REDUCED ORAL)
     Route: 048
     Dates: start: 20100211, end: 20100307
  3. VIMPAT [Suspect]
     Indication: EPILEPSY
     Dosage: (100 MG BID ORAL), (150 MG, 50+100 MG/DAY ORAL), (DOSE REDUCED ORAL)
     Route: 048
     Dates: start: 20091214
  4. LYRICA [Concomitant]
  5. OXCARBAZEPINE [Concomitant]
  6. LOSFERRON /00023502/ [Concomitant]
  7. VENOFER [Concomitant]

REACTIONS (8)
  - AGGRESSION [None]
  - AGITATION [None]
  - COMPLEX PARTIAL SEIZURES [None]
  - CONDITION AGGRAVATED [None]
  - FATIGUE [None]
  - GRAND MAL CONVULSION [None]
  - IRRITABILITY [None]
  - NERVOUSNESS [None]
